FAERS Safety Report 21273062 (Version 5)
Quarter: 2022Q4

REPORT INFORMATION
  Report Type: Report from Study
  Country: CN (occurrence: None)
  Receive Date: 20220831
  Receipt Date: 20221104
  Transmission Date: 20230113
  Serious: Yes (Hospitalization)
  Sender: FDA-Public Use
  Company Number: CN-ROCHE-3166999

PATIENT
  Age: 53 Year
  Sex: Female
  Weight: 55 kg

DRUGS (52)
  1. RITUXIMAB [Suspect]
     Active Substance: RITUXIMAB
     Indication: Lymphoma
     Dosage: 10 MILLIGRAM PER MILLILITRE
     Route: 041
     Dates: start: 20220322, end: 20220322
  2. RITUXIMAB [Suspect]
     Active Substance: RITUXIMAB
     Indication: Diffuse large B-cell lymphoma
     Dosage: 10 MILLIGRAM PER MILLILITRE
     Route: 041
     Dates: start: 20220329, end: 20220329
  3. RITUXIMAB [Suspect]
     Active Substance: RITUXIMAB
     Dosage: 10 MILLIGRAM PER MILLILITRE
     Route: 041
     Dates: start: 20220407, end: 20220407
  4. RITUXIMAB [Suspect]
     Active Substance: RITUXIMAB
     Dosage: 10 MILLIGRAM PER MILLILITRE
     Route: 041
     Dates: start: 20220412, end: 20220412
  5. RITUXIMAB [Suspect]
     Active Substance: RITUXIMAB
     Dosage: 10 MILLIGRAM PER MILLILITRE
     Route: 041
     Dates: start: 20220419, end: 20220419
  6. RITUXIMAB [Suspect]
     Active Substance: RITUXIMAB
     Dosage: 10 MILLIGRAM PER MILLILITRE
     Route: 041
     Dates: start: 20220518, end: 20220518
  7. RITUXIMAB [Suspect]
     Active Substance: RITUXIMAB
     Dosage: 10 MILLIGRAM PER MILLILITRE
     Route: 041
     Dates: start: 20220615, end: 20220615
  8. RITUXIMAB [Suspect]
     Active Substance: RITUXIMAB
     Dosage: 10 MILLIGRAM PER MILLILITRE
     Route: 041
     Dates: start: 20220713, end: 20220713
  9. LEMZOPARLIMAB [Suspect]
     Active Substance: LEMZOPARLIMAB
     Indication: Lymphoma
     Dosage: FREQUENCY: QW
     Route: 041
     Dates: start: 20220322, end: 20220322
  10. LEMZOPARLIMAB [Suspect]
     Active Substance: LEMZOPARLIMAB
     Dosage: FREQUENCY: QW
     Route: 041
     Dates: start: 20220329, end: 20220329
  11. LEMZOPARLIMAB [Suspect]
     Active Substance: LEMZOPARLIMAB
     Dosage: FREQUENCY: QW
     Route: 041
     Dates: start: 20220407, end: 20220407
  12. LEMZOPARLIMAB [Suspect]
     Active Substance: LEMZOPARLIMAB
     Dosage: FREQUENCY: QW
     Route: 041
     Dates: start: 20220412, end: 20220412
  13. LEMZOPARLIMAB [Suspect]
     Active Substance: LEMZOPARLIMAB
     Dosage: FREQUENCY: QW
     Route: 041
     Dates: start: 20220419, end: 20220419
  14. LEMZOPARLIMAB [Suspect]
     Active Substance: LEMZOPARLIMAB
     Dosage: FREQUENCY: QW
     Route: 041
     Dates: start: 20220427, end: 20220427
  15. LEMZOPARLIMAB [Suspect]
     Active Substance: LEMZOPARLIMAB
     Dosage: FREQUENCY: QW
     Route: 041
     Dates: start: 20220506, end: 20220506
  16. LEMZOPARLIMAB [Suspect]
     Active Substance: LEMZOPARLIMAB
     Dosage: FREQUENCY: QW
     Route: 041
     Dates: start: 20220518, end: 20220518
  17. LEMZOPARLIMAB [Suspect]
     Active Substance: LEMZOPARLIMAB
     Dosage: FREQUENCY: QW
     Route: 041
     Dates: start: 20220525, end: 20220525
  18. LEMZOPARLIMAB [Suspect]
     Active Substance: LEMZOPARLIMAB
     Dosage: FREQUENCY: QW
     Route: 041
     Dates: start: 20220602, end: 20220602
  19. LEMZOPARLIMAB [Suspect]
     Active Substance: LEMZOPARLIMAB
     Dosage: FREQUENCY: QW
     Route: 041
     Dates: start: 20220609, end: 20220609
  20. LEMZOPARLIMAB [Suspect]
     Active Substance: LEMZOPARLIMAB
     Dosage: FREQUENCY: QW
     Route: 041
     Dates: start: 20220615, end: 20220615
  21. LEMZOPARLIMAB [Suspect]
     Active Substance: LEMZOPARLIMAB
     Dosage: FREQUENCY: QW
     Route: 041
     Dates: start: 20220623, end: 20220623
  22. LEMZOPARLIMAB [Suspect]
     Active Substance: LEMZOPARLIMAB
     Dosage: FREQUENCY: QW
     Route: 041
     Dates: start: 20220629, end: 20220629
  23. LEMZOPARLIMAB [Suspect]
     Active Substance: LEMZOPARLIMAB
     Dosage: FREQUENCY: QW
     Route: 041
     Dates: start: 20220707, end: 20220707
  24. LEMZOPARLIMAB [Suspect]
     Active Substance: LEMZOPARLIMAB
     Dosage: QW
     Route: 041
     Dates: start: 20220713, end: 20220713
  25. LEMZOPARLIMAB [Suspect]
     Active Substance: LEMZOPARLIMAB
     Dosage: QW
     Route: 041
     Dates: start: 20220721, end: 20220721
  26. LEMZOPARLIMAB [Suspect]
     Active Substance: LEMZOPARLIMAB
     Route: 041
     Dates: start: 20220729, end: 20220729
  27. LEMZOPARLIMAB [Suspect]
     Active Substance: LEMZOPARLIMAB
     Route: 041
     Dates: start: 20220804, end: 20220804
  28. LEMZOPARLIMAB [Suspect]
     Active Substance: LEMZOPARLIMAB
     Route: 041
     Dates: start: 20220812, end: 20220812
  29. LEMZOPARLIMAB [Suspect]
     Active Substance: LEMZOPARLIMAB
     Route: 041
     Dates: start: 20220901, end: 20220901
  30. LEMZOPARLIMAB [Suspect]
     Active Substance: LEMZOPARLIMAB
     Dosage: QW
     Route: 041
     Dates: start: 20220909, end: 20220909
  31. LEMZOPARLIMAB [Suspect]
     Active Substance: LEMZOPARLIMAB
     Dosage: QW
     Route: 041
     Dates: start: 20220913, end: 20220913
  32. DEXAMETHASONE [Concomitant]
     Active Substance: DEXAMETHASONE
     Indication: Hypersensitivity
     Route: 041
     Dates: start: 20220322
  33. DIPHENHYDRAMINE [Concomitant]
     Active Substance: DIPHENHYDRAMINE
     Dosage: PREVENTION OF ALLERGY
     Route: 030
     Dates: start: 20220322
  34. COMPOUND PARACETAMOL [Concomitant]
     Dosage: PREVENT HEAT
     Route: 048
     Dates: start: 20220322
  35. CIMETIDINE [Concomitant]
     Active Substance: CIMETIDINE
     Dosage: INDICATION: STOMACH PROTECTION
     Route: 041
     Dates: start: 20220322
  36. MAGNESIUM ASPARTATE\POTASSIUM ASPARTATE [Concomitant]
     Active Substance: MAGNESIUM ASPARTATE\POTASSIUM ASPARTATE
     Indication: Arrhythmia
     Route: 048
     Dates: start: 20220316, end: 20220415
  37. MAGNESIUM ASPARTATE\POTASSIUM ASPARTATE [Concomitant]
     Active Substance: MAGNESIUM ASPARTATE\POTASSIUM ASPARTATE
     Route: 048
     Dates: start: 20220418
  38. UBIDECARENONE [Concomitant]
     Active Substance: UBIDECARENONE
     Indication: Arrhythmia
     Route: 048
     Dates: start: 20220316, end: 20220415
  39. UBIDECARENONE [Concomitant]
     Active Substance: UBIDECARENONE
     Route: 048
     Dates: start: 20220418
  40. BISOPROLOL FUMARATE [Concomitant]
     Active Substance: BISOPROLOL FUMARATE
     Indication: Arrhythmia
     Route: 048
     Dates: start: 20220316, end: 20220415
  41. BISOPROLOL FUMARATE [Concomitant]
     Active Substance: BISOPROLOL FUMARATE
     Route: 048
     Dates: start: 20220418
  42. TRIMETAZIDINE DIHYDROCHLORIDE [Concomitant]
     Active Substance: TRIMETAZIDINE DIHYDROCHLORIDE
     Indication: Arrhythmia
     Route: 048
     Dates: start: 20220418
  43. HEPARIN SODIUM [Concomitant]
     Active Substance: HEPARIN SODIUM
     Dosage: 12500 U, INDICATION-THROMBOPROPHYLAXIS
     Route: 058
     Dates: start: 20220506
  44. ESOMEPRAZOLE MAGNESIUM [Concomitant]
     Active Substance: ESOMEPRAZOLE MAGNESIUM
     Dosage: INDICATION: PROTECT THE STOMACH
     Route: 048
     Dates: start: 20220629
  45. COMBINED BIFIDOBACTERIUM, LACTOBACILLUS, ENTEROCOCCUS AND BACILLUS CER [Concomitant]
     Indication: Diarrhoea
     Route: 048
     Dates: start: 20220701
  46. COMPOUND DIGESTIVE ENZYME CAPSULES (II) [Concomitant]
     Indication: Abdominal distension
     Route: 048
     Dates: start: 20220713
  47. DOMPERIDONE [Concomitant]
     Active Substance: DOMPERIDONE
     Indication: Abdominal distension
     Route: 048
     Dates: start: 20220713
  48. ESOMEPRAZOLE SODIUM [Concomitant]
     Active Substance: ESOMEPRAZOLE SODIUM
     Indication: Abdominal distension
     Route: 041
     Dates: start: 20220713
  49. ESOMEPRAZOLE SODIUM [Concomitant]
     Active Substance: ESOMEPRAZOLE SODIUM
     Route: 041
     Dates: start: 20220721
  50. ESOMEPRAZOLE SODIUM [Concomitant]
     Active Substance: ESOMEPRAZOLE SODIUM
     Route: 041
     Dates: start: 20220729
  51. ESOMEPRAZOLE SODIUM [Concomitant]
     Active Substance: ESOMEPRAZOLE SODIUM
     Route: 041
     Dates: start: 20220804
  52. ESOMEPRAZOLE SODIUM [Concomitant]
     Active Substance: ESOMEPRAZOLE SODIUM
     Route: 041
     Dates: start: 20220812

REACTIONS (1)
  - Gastritis [Recovering/Resolving]

NARRATIVE: CASE EVENT DATE: 20220501
